FAERS Safety Report 8305981-1 (Version None)
Quarter: 2012Q1

REPORT INFORMATION
  Report Type: 
  Country: None (occurrence: None)
  Receive Date: 20120327
  Receipt Date: 20091113
  Transmission Date: 20120608
  Serious: Yes (Other)
  Sender: FDA-Public Use
  Company Number: PHEH2009US16254

PATIENT
  Age: 35 Year
  Sex: Female

DRUGS (1)
  1. GLEEVEC [Suspect]
     Dosage: 400 MG, QD, ORAL
     Route: 048
     Dates: start: 20091015

REACTIONS (7)
  - PAIN [None]
  - NAUSEA [None]
  - DIARRHOEA [None]
  - FLUID RETENTION [None]
  - ANAEMIA [None]
  - MUSCLE SPASMS [None]
  - WEIGHT INCREASED [None]
